FAERS Safety Report 11015847 (Version 2)
Quarter: 2015Q2

REPORT INFORMATION
  Report Type: Spontaneous
  Country: US (occurrence: US)
  Receive Date: 20150412
  Receipt Date: 20150525
  Transmission Date: 20150821
  Serious: Yes (Other)
  Sender: FDA-Public Use
  Company Number: US-JNJFOC-20100305377

PATIENT
  Age: 61 Year
  Sex: Male
  Weight: 71 kg

DRUGS (1)
  1. SIMPONI [Suspect]
     Active Substance: GOLIMUMAB
     Indication: ANKYLOSING SPONDYLITIS
     Route: 058
     Dates: start: 20090902, end: 20100221

REACTIONS (3)
  - Pustular psoriasis [Recovered/Resolved]
  - Gingivitis [Recovered/Resolved]
  - Guttate psoriasis [Recovered/Resolved]

NARRATIVE: CASE EVENT DATE: 201003
